FAERS Safety Report 8353243-9 (Version None)
Quarter: 2012Q2

REPORT INFORMATION
  Report Type: 
  Country: None (occurrence: None)
  Receive Date: 20120511
  Receipt Date: 20120427
  Transmission Date: 20120825
  Serious: Yes (Disabling, Other)
  Sender: FDA-Public Use
  Company Number: US-JNJFOC-20110908830

PATIENT
  Sex: Male
  Weight: 61.19 kg

DRUGS (32)
  1. LISINOPRIL [Concomitant]
     Route: 048
  2. LOVENOX [Concomitant]
     Indication: THROMBOSIS PROPHYLAXIS
     Route: 058
  3. METOPROLOL SUCCINATE [Concomitant]
     Route: 048
  4. ASPIRIN [Concomitant]
     Route: 048
  5. LISINOPRIL [Concomitant]
     Route: 048
     Dates: start: 20110130
  6. GLYBURIDE [Concomitant]
     Route: 048
  7. METFORMIN HCL [Concomitant]
     Route: 048
  8. VASOTEC [Concomitant]
     Indication: HYPERTENSION
     Route: 042
     Dates: start: 20110131
  9. TOPICORT CREAM [Concomitant]
     Indication: RASH
     Route: 061
     Dates: start: 20110131
  10. HYDROXYZINE HCL [Concomitant]
     Route: 048
  11. CLONIDINE HCL [Concomitant]
     Route: 048
  12. TYLENOL (CAPLET) [Concomitant]
     Route: 048
     Dates: start: 20110130
  13. LEVAQUIN [Suspect]
     Indication: BRONCHITIS
     Route: 042
     Dates: start: 20110130
  14. FLUOCINONIDE [Concomitant]
     Route: 065
  15. METOPROLOL TARTRATE [Concomitant]
     Route: 048
     Dates: start: 20110130
  16. ALBUTEROL [Concomitant]
     Route: 055
     Dates: start: 20110130
  17. HYDROCODONE BITARTRATE + ACETAMINOPHEN [Concomitant]
     Route: 048
  18. SULFAMETHOXAZOLE [Concomitant]
     Route: 048
  19. HYDRALAZINE HCL [Concomitant]
     Route: 048
  20. CLARITHROMYCIN [Concomitant]
     Route: 048
  21. DEXTROSE [Concomitant]
     Indication: HYPOGLYCAEMIA
     Route: 042
     Dates: start: 20110130
  22. ATROVENT [Concomitant]
     Route: 055
     Dates: start: 20110130
  23. XOPENEX [Concomitant]
     Route: 055
     Dates: start: 20110130
  24. LEVAQUIN [Suspect]
     Route: 048
     Dates: start: 20110131
  25. RANITIDINE HCL [Concomitant]
     Route: 048
  26. SIMVASTATIN [Concomitant]
     Route: 048
  27. HYDROCHLOROTHIAZIDE [Concomitant]
     Route: 048
  28. LISINOPRIL [Concomitant]
     Route: 048
  29. INSULIN HUMAN [Concomitant]
     Route: 058
     Dates: start: 20110130
  30. NORVASC [Concomitant]
     Route: 048
  31. BETAMETHASONE DIPROPIONATE [Concomitant]
     Route: 065
  32. CLOBETASOL PROPIONATE [Concomitant]
     Route: 065

REACTIONS (10)
  - EYE DISORDER [None]
  - MUSCULAR WEAKNESS [None]
  - BLINDNESS UNILATERAL [None]
  - TENDON INJURY [None]
  - RASH [None]
  - HYPOGLYCAEMIA [None]
  - VASCULAR CALCIFICATION [None]
  - EYE HAEMORRHAGE [None]
  - HYPOAESTHESIA [None]
  - MYALGIA [None]
